FAERS Safety Report 8298497-2 (Version None)
Quarter: 2012Q2

REPORT INFORMATION
  Report Type: 
  Country: None (occurrence: None)
  Receive Date: 20120419
  Receipt Date: 20120109
  Transmission Date: 20120825
  Serious: No
  Sender: FDA-Public Use
  Company Number: US-ABBOTT-12P-163-0893303-00

PATIENT
  Sex: Female
  Weight: 45.4 kg

DRUGS (4)
  1. THYROID MEDICATION [Concomitant]
     Indication: HYPOTHYROIDISM
  2. VITAMIN D [Concomitant]
     Indication: PRODUCT USED FOR UNKNOWN INDICATION
  3. LUPRON DEPOT-PED [Suspect]
     Indication: PRECOCIOUS PUBERTY
     Dates: start: 20100101, end: 20111101
  4. LUPRON DEPOT-PED [Suspect]
     Dates: start: 20111101

REACTIONS (1)
  - RASH [None]
